FAERS Safety Report 14433923 (Version 1)
Quarter: 2018Q1

REPORT INFORMATION
  Report Type: Spontaneous
  Country: TR (occurrence: TR)
  Receive Date: 20180124
  Receipt Date: 20180124
  Transmission Date: 20180509
  Serious: Yes (Other)
  Sender: FDA-Public Use
  Company Number: TR-MYLANLABS-2018M1004888

PATIENT
  Age: 2 Month
  Sex: Female

DRUGS (1)
  1. CLOBETASOL [Suspect]
     Active Substance: CLOBETASOL
     Indication: DERMATITIS DIAPER
     Dosage: 2-3 TIMES A DAY FOR 2 MONTHS; FIVE TUBES (15 G/TUBE) HAD BEEN USED IN 2 MONTHS.
     Route: 061

REACTIONS (2)
  - Cushing^s syndrome [Recovering/Resolving]
  - Intentional product misuse [Recovering/Resolving]
